FAERS Safety Report 6230941-4 (Version None)
Quarter: 2009Q2

REPORT INFORMATION
  Report Type: 
  Country: None (occurrence: None)
  Receive Date: 20090611
  Receipt Date: 20090605
  Transmission Date: 20091009
  Serious: Yes (Disabling)
  Sender: FDA-Public Use
  Company Number: ADR2482009

PATIENT
  Age: 44 Year
  Sex: Female

DRUGS (2)
  1. LAMOTRIGINE          (MFR: UNKNOWN) [Suspect]
     Indication: MOOD SWINGS
     Dosage: 100 MG TWICE PER DAY ORAL
     Route: 048
     Dates: start: 20090501, end: 20090505
  2. ANAESTHETIC (GENERAL ANAESTHESIA) [Concomitant]

REACTIONS (5)
  - AGITATION [None]
  - ANGER [None]
  - HYPERSOMNIA [None]
  - INCREASED APPETITE [None]
  - SEDATION [None]
